FAERS Safety Report 20569595 (Version 2)
Quarter: 2022Q1

REPORT INFORMATION
  Report Type: Spontaneous
  Country: US (occurrence: None)
  Receive Date: 20220309
  Receipt Date: 20220316
  Transmission Date: 20220424
  Serious: No
  Sender: FDA-Public Use
  Company Number: US-ROCHE-2788235

PATIENT
  Sex: Female

DRUGS (9)
  1. XOLAIR [Suspect]
     Active Substance: OMALIZUMAB
     Indication: Asthma
     Route: 058
  2. XOLAIR [Suspect]
     Active Substance: OMALIZUMAB
  3. XOLAIR [Suspect]
     Active Substance: OMALIZUMAB
  4. TIAGABINE HYDROCHLORIDE [Concomitant]
     Active Substance: TIAGABINE HYDROCHLORIDE
  5. ITRACONAZOLE [Concomitant]
     Active Substance: ITRACONAZOLE
  6. AMOXICILLIN [Concomitant]
     Active Substance: AMOXICILLIN
  7. ESCITALOPRAM [Concomitant]
     Active Substance: ESCITALOPRAM OXALATE
  8. VAGIFEM [Concomitant]
     Active Substance: ESTRADIOL
  9. ADVAIR DISKUS [Concomitant]
     Active Substance: FLUTICASONE PROPIONATE\SALMETEROL XINAFOATE

REACTIONS (1)
  - COVID-19 [Unknown]
